FAERS Safety Report 5481434-3 (Version None)
Quarter: 2007Q4

REPORT INFORMATION
  Report Type: 
  Country: None (occurrence: None)
  Receive Date: 20071010
  Receipt Date: 20071009
  Transmission Date: 20080405
  Serious: Yes (Hospitalization)
  Sender: FDA-Public Use
  Company Number: B0490177A

PATIENT
  Sex: Male

DRUGS (8)
  1. AUGMENTIN '125' [Suspect]
     Indication: BRONCHITIS
     Dosage: 2000MG PER DAY
     Dates: start: 20070823, end: 20070903
  2. OXAZEPAM [Suspect]
     Indication: DRUG USE FOR UNKNOWN INDICATION
     Dosage: 150MG PER DAY
     Dates: start: 20070827, end: 20070827
  3. QUILONORM [Concomitant]
     Dates: start: 20070820
  4. ZYPREXA [Concomitant]
     Indication: SCHIZOAFFECTIVE DISORDER
     Dosage: 20MG PER DAY
     Dates: start: 20070820
  5. NOZINAN [Concomitant]
     Indication: SCHIZOAFFECTIVE DISORDER
     Dates: start: 20070820
  6. NOOTROPIL [Concomitant]
     Dosage: 3200MG PER DAY
     Dates: start: 20070828, end: 20070831
  7. TRILEPTAL [Concomitant]
     Dosage: 900MG PER DAY
     Dates: start: 20070828, end: 20070831
  8. MILTAUN [Concomitant]
     Dates: start: 20070827, end: 20070831

REACTIONS (6)
  - CONFUSIONAL STATE [None]
  - DELIRIUM [None]
  - DRY MOUTH [None]
  - HYPERHIDROSIS [None]
  - TACHYCARDIA [None]
  - TREMOR [None]
